FAERS Safety Report 14193532 (Version 1)
Quarter: 2017Q4

REPORT INFORMATION
  Report Type: Spontaneous
  Country: US (occurrence: US)
  Receive Date: 20171115
  Receipt Date: 20171115
  Transmission Date: 20180321
  Serious: No
  Sender: FDA-Public Use
  Company Number: US-BAUSCH-BL-2017-005189

PATIENT
  Age: 69 Year
  Sex: Male
  Weight: 74.46 kg

DRUGS (6)
  1. NUPLAZID [Suspect]
     Active Substance: PIMAVANSERIN TARTRATE
     Indication: DEMENTIA
  2. XENAZINE [Suspect]
     Active Substance: TETRABENAZINE
     Indication: PARKINSON^S DISEASE
     Route: 065
     Dates: start: 201609, end: 20170125
  3. NUPLAZID [Suspect]
     Active Substance: PIMAVANSERIN TARTRATE
     Indication: HALLUCINATION
  4. XENAZINE [Suspect]
     Active Substance: TETRABENAZINE
     Indication: GAIT DISTURBANCE
  5. NUPLAZID [Suspect]
     Active Substance: PIMAVANSERIN TARTRATE
     Indication: DYSKINESIA
  6. NUPLAZID [Suspect]
     Active Substance: PIMAVANSERIN TARTRATE
     Indication: PARKINSON^S DISEASE
     Route: 065
     Dates: start: 2016, end: 20170125

REACTIONS (4)
  - Depression [Not Recovered/Not Resolved]
  - Mental disorder [Not Recovered/Not Resolved]
  - Hallucination [Not Recovered/Not Resolved]
  - Off label use [Recovered/Resolved]

NARRATIVE: CASE EVENT DATE: 201609
